FAERS Safety Report 8912206 (Version 2)
Quarter: 2012Q4

REPORT INFORMATION
  Report Type: 
  Country: ES (occurrence: ES)
  Receive Date: 20121116
  Receipt Date: 20121126
  Transmission Date: 20130627
  Serious: Yes (Hospitalization)
  Sender: FDA-Public Use
  Company Number: ES-GILEAD-2012-0064688

PATIENT
  Age: 43 Year
  Sex: Male

DRUGS (2)
  1. TRUVADA [Suspect]
     Indication: HIV INFECTION
     Dosage: 500 mg, QD
     Route: 048
     Dates: start: 2007
  2. FOSAMPRENAVIR W/RITONAVIR [Concomitant]
     Indication: HIV INFECTION
     Dosage: 500 mg, BID
     Route: 048
     Dates: start: 2007

REACTIONS (1)
  - Immune reconstitution inflammatory syndrome [Recovered/Resolved]
